FAERS Safety Report 24680377 (Version 1)
Quarter: 2024Q4

REPORT INFORMATION
  Report Type: Spontaneous
  Country: US (occurrence: US)
  Receive Date: 20241129
  Receipt Date: 20241129
  Transmission Date: 20250115
  Serious: Yes (Hospitalization)
  Sender: DR REDDYS
  Company Number: None

PATIENT
  Age: 11 Year
  Sex: Male

DRUGS (4)
  1. FLUOXETINE [Suspect]
     Active Substance: FLUOXETINE HYDROCHLORIDE
     Indication: Obsessive-compulsive disorder
     Dosage: QAM
     Route: 048
     Dates: start: 202001, end: 2020
  2. ATOMOXETINE [Suspect]
     Active Substance: ATOMOXETINE HYDROCHLORIDE
     Indication: Attention deficit hyperactivity disorder
     Dosage: QAM
     Route: 048
     Dates: start: 201912, end: 202002
  3. ATOMOXETINE [Suspect]
     Active Substance: ATOMOXETINE HYDROCHLORIDE
     Dosage: INCREASED TO 25 MG PO QAM FOR 4 WEEKS
     Route: 048
     Dates: start: 202002, end: 2020
  4. ATOMOXETINE [Suspect]
     Active Substance: ATOMOXETINE HYDROCHLORIDE
     Dosage: BUILT UP TO 40 MG PO QAM
     Route: 048
     Dates: start: 2020, end: 2020

REACTIONS (7)
  - Attention deficit hyperactivity disorder [Recovering/Resolving]
  - Agitation [Recovering/Resolving]
  - Obsessive-compulsive symptom [Recovering/Resolving]
  - Anxiety [Recovering/Resolving]
  - Aggression [Recovering/Resolving]
  - Condition aggravated [Recovering/Resolving]
  - Drug interaction [Recovering/Resolving]

NARRATIVE: CASE EVENT DATE: 20200101
